FAERS Safety Report 5099940-2 (Version None)
Quarter: 2006Q3

REPORT INFORMATION
  Report Type: 
  Country: None (occurrence: None)
  Receive Date: 20060908
  Receipt Date: 20060601
  Transmission Date: 20061208
  Serious: Yes (Hospitalization)
  Sender: FDA-Public Use
  Company Number: US-BRISTOL-MYERS SQUIBB COMPANY-13467063

PATIENT
  Age: 66 Year
  Sex: Female

DRUGS (8)
  1. ORENCIA [Suspect]
     Indication: RHEUMATOID ARTHRITIS
     Route: 042
     Dates: start: 20060308, end: 20060607
  2. PREDNISONE TAB [Concomitant]
  3. METHOTREXATE [Concomitant]
  4. PRILOSEC [Concomitant]
  5. PREMARIN [Concomitant]
  6. LEXAPRO [Concomitant]
     Dosage: DOSAGE FORM = TABLET
  7. EXCEDRIN (MIGRAINE) [Concomitant]
  8. CALCIUM SUPPLEMENT [Concomitant]

REACTIONS (4)
  - COUGH [None]
  - HEADACHE [None]
  - NIGHT SWEATS [None]
  - PYREXIA [None]
